FAERS Safety Report 16409901 (Version 2)
Quarter: 2019Q2

REPORT INFORMATION
  Report Type: Spontaneous
  Country: DE (occurrence: DE)
  Receive Date: 20190610
  Receipt Date: 20190613
  Transmission Date: 20190711
  Serious: Yes (Hospitalization)
  Sender: FDA-Public Use
  Company Number: DE-SA-2019SA141143

PATIENT
  Sex: Female

DRUGS (4)
  1. TRIAM INJEKT (TRIAMCINOLONE ACETONIDE) [Suspect]
     Active Substance: TRIAMCINOLONE ACETONIDE
     Indication: PSORIASIS
     Dosage: UNK
     Route: 030
  2. TRIAM INJEKT (TRIAMCINOLONE ACETONIDE) [Suspect]
     Active Substance: TRIAMCINOLONE ACETONIDE
     Indication: SKIN FISSURES
  3. FLUCONAZOLE. [Concomitant]
     Active Substance: FLUCONAZOLE
     Dosage: 1 DF, QOD
  4. L-THYROXINE [LEVOTHYROXINE] [Concomitant]
     Active Substance: LEVOTHYROXINE
     Dosage: UNK

REACTIONS (9)
  - Gait inability [Not Recovered/Not Resolved]
  - Product administration error [Unknown]
  - Metrorrhagia [Not Recovered/Not Resolved]
  - Pain [Not Recovered/Not Resolved]
  - Aphthous ulcer [Not Recovered/Not Resolved]
  - Acne [Not Recovered/Not Resolved]
  - Cardiovascular disorder [Not Recovered/Not Resolved]
  - Tendonitis [Not Recovered/Not Resolved]
  - Oral mucosal blistering [Not Recovered/Not Resolved]
